FAERS Safety Report 9224287 (Version 2)
Quarter: 2013Q3

REPORT INFORMATION
  Report Type: Spontaneous
  Country: US (occurrence: US)
  Receive Date: 20130411
  Receipt Date: 20130809
  Transmission Date: 20140515
  Serious: Yes (Other)
  Sender: FDA-Public Use
  Company Number: US-009507513-2012SP023943

PATIENT
  Age: 49 Year
  Sex: Female
  Weight: 106.5 kg

DRUGS (1)
  1. DULERA [Suspect]
     Indication: ASTHMA
     Dosage: 2 INHALATIONS, STRENGTH :100/5
     Route: 048
     Dates: start: 20111212, end: 20111212

REACTIONS (1)
  - Ventricular extrasystoles [Unknown]
